FAERS Safety Report 9590694 (Version 2)
Quarter: 2013Q4

REPORT INFORMATION
  Report Type: Spontaneous
  Country: US (occurrence: US)
  Receive Date: 20131003
  Receipt Date: 20131003
  Transmission Date: 20140711
  Serious: No
  Sender: FDA-Public Use
  Company Number: US-AMGEN-USASP2012075115

PATIENT
  Age: 77 Year
  Sex: Male
  Weight: 117.46 kg

DRUGS (20)
  1. ENBREL [Suspect]
     Indication: PSORIASIS
     Dosage: 50 MG, 2 TIMES/WK
     Route: 058
     Dates: start: 20121017
  2. ENBREL [Suspect]
     Indication: PSORIATIC ARTHROPATHY
  3. LASIX                              /00032601/ [Concomitant]
     Dosage: 20 UNK, PO
     Route: 048
  4. POTASSIUM [Concomitant]
     Dosage: UNK
  5. CHELATED CALCIUM [Concomitant]
     Dosage: UNK
     Route: 048
  6. THEOPHYLLINE [Concomitant]
     Dosage: 125 MG, UNK
     Route: 048
  7. STALEVO [Concomitant]
     Dosage: UNK
     Route: 048
  8. ZOLOFT [Concomitant]
     Dosage: 50 MG, UNK
     Route: 048
  9. MYSOLINE [Concomitant]
     Dosage: 250 MG, UNK
     Route: 048
  10. MEDROL                             /00049603/ [Concomitant]
     Dosage: 4 MG, UNK
     Route: 048
  11. MOTRIN [Concomitant]
     Dosage: 400 MG, UNK
     Route: 048
  12. ALBUTEROL                          /00139501/ [Concomitant]
     Dosage: 90 MCG
  13. AERIUS                             /01009701/ [Concomitant]
     Dosage: 90 MCG
  14. XYZAL [Concomitant]
     Dosage: 5 MG, UNK
     Route: 048
  15. BABY ASPIRIN [Concomitant]
     Dosage: 81 MG, UNK
     Route: 048
  16. VYTORIN [Concomitant]
     Dosage: 10 MG, UNK
  17. CARVEDILOL [Concomitant]
     Dosage: 12.5 MG, UNK
     Route: 048
  18. ZESTRIL [Concomitant]
     Dosage: 10 MG, UNK
     Route: 048
  19. AMIODARON                          /00133102/ [Concomitant]
     Dosage: 200 MG, UNK
  20. SPIRIVA [Concomitant]
     Dosage: UNK

REACTIONS (3)
  - Pyrexia [Recovered/Resolved]
  - Dyspnoea [Not Recovered/Not Resolved]
  - Respiratory tract infection [Unknown]
